FAERS Safety Report 19859067 (Version 2)
Quarter: 2021Q4

REPORT INFORMATION
  Report Type: Report from Study
  Country: PL (occurrence: PL)
  Receive Date: 20210921
  Receipt Date: 20211124
  Transmission Date: 20220303
  Serious: Yes (Other)
  Sender: FDA-Public Use
  Company Number: PL-SUN PHARMACEUTICAL INDUSTRIES LTD-2021RR-311926

PATIENT
  Age: 73 Year
  Sex: Female

DRUGS (7)
  1. CITALOPRAM [Suspect]
     Active Substance: CITALOPRAM HYDROBROMIDE
     Indication: Neuralgia
     Dosage: 20 MILLIGRAM, DAILY
     Route: 065
  2. MORPHINE [Suspect]
     Active Substance: MORPHINE
     Indication: Neuralgia
     Dosage: 60 MILLIGRAM, DAILY
     Route: 065
  3. GABAPENTIN [Interacting]
     Active Substance: GABAPENTIN
     Indication: Neuralgia
     Dosage: 600 MILLIGRAM, DAILY
     Route: 065
  4. PREGABALIN [Suspect]
     Active Substance: PREGABALIN
     Indication: Neuralgia
     Dosage: 300 MILLIGRAM, DAILY
     Route: 065
  5. DULOXETINE [Suspect]
     Active Substance: DULOXETINE
     Indication: Neuralgia
     Dosage: 60 MILLIGRAM, DAILY
     Route: 065
  6. HYDROXYZINE [Interacting]
     Active Substance: HYDROXYZINE HYDROCHLORIDE
     Indication: Neuralgia
     Dosage: 10 MILLIGRAM, DAILY
     Route: 065
  7. TAPENTADOL [Suspect]
     Active Substance: TAPENTADOL
     Indication: Neuralgia
     Dosage: 200 MILLIGRAM, DAILY
     Route: 065

REACTIONS (6)
  - Drug ineffective [Unknown]
  - Constipation [Unknown]
  - Therapeutic product effect incomplete [Unknown]
  - Delirium [Unknown]
  - Confusional state [Unknown]
  - Drug interaction [Unknown]
